FAERS Safety Report 16322209 (Version 1)
Quarter: 2019Q2

REPORT INFORMATION
  Report Type: Spontaneous
  Country: US (occurrence: US)
  Receive Date: 20190516
  Receipt Date: 20190516
  Transmission Date: 20190711
  Serious: Yes (Disabling, Other)
  Sender: FDA-Public Use
  Company Number: US-TARO-2018TAR00935

PATIENT
  Sex: Male

DRUGS (2)
  1. UNSPECIFIED MEDICATIONS [Suspect]
     Active Substance: UNSPECIFIED INGREDIENT
     Indication: OPTIC NEUROPATHY
  2. AMIODARONE HCL TABLET 200 MG [Suspect]
     Active Substance: AMIODARONE HYDROCHLORIDE
     Indication: ATRIAL FIBRILLATION
     Dosage: UNK
     Dates: start: 201705

REACTIONS (7)
  - Dizziness [Unknown]
  - Blindness [Not Recovered/Not Resolved]
  - Asthenia [Unknown]
  - Unevaluable event [Unknown]
  - Coordination abnormal [Unknown]
  - Off label use [Unknown]
  - Optic neuropathy [Unknown]

NARRATIVE: CASE EVENT DATE: 201705
